FAERS Safety Report 9882819 (Version 3)
Quarter: 2014Q2

REPORT INFORMATION
  Report Type: Report from Study
  Country: US (occurrence: US)
  Receive Date: 20140207
  Receipt Date: 20140626
  Transmission Date: 20141212
  Serious: Yes (Other)
  Sender: FDA-Public Use
  Company Number: US-ABBVIE-14P-163-1195113-00

PATIENT
  Age: 61 Year
  Sex: Male
  Weight: 56.75 kg

DRUGS (8)
  1. HUMIRA [Suspect]
     Indication: RHEUMATOID ARTHRITIS
     Route: 058
     Dates: start: 201206
  2. BABY ASPIRIN [Concomitant]
     Indication: CARDIAC DISORDER
  3. BABY ASPIRIN [Concomitant]
     Indication: CARDIAC DISORDER
  4. XANAX [Concomitant]
     Indication: ABDOMINAL DISCOMFORT
  5. PREDNISONE [Concomitant]
     Indication: RHEUMATOID ARTHRITIS
  6. CYCLOBENZAPRINE [Concomitant]
     Indication: MUSCULOSKELETAL STIFFNESS
  7. PERCOCET [Concomitant]
     Indication: PAIN
  8. IBUPROFEN [Concomitant]
     Indication: PAIN

REACTIONS (5)
  - Blood pressure decreased [Recovered/Resolved]
  - Unevaluable event [Recovered/Resolved]
  - Dehydration [Recovered/Resolved]
  - Unevaluable event [Recovered/Resolved]
  - Opiates positive [Unknown]
